FAERS Safety Report 13372078 (Version 7)
Quarter: 2017Q3

REPORT INFORMATION
  Report Type: Report from Study
  Country: AT (occurrence: AT)
  Receive Date: 20170327
  Receipt Date: 20170829
  Transmission Date: 20171127
  Serious: Yes (Hospitalization)
  Sender: FDA-Public Use
  Company Number: AT-ROCHE-1910226

PATIENT
  Age: 64 Year
  Sex: Male
  Weight: 94 kg

DRUGS (27)
  1. CIPROFLOXACIN. [Concomitant]
     Active Substance: CIPROFLOXACIN
     Route: 048
     Dates: start: 20170306, end: 20170310
  2. ETOPOSIDE. [Suspect]
     Active Substance: ETOPOSIDE
     Indication: SMALL CELL LUNG CANCER EXTENSIVE STAGE
     Dosage: DATE OF THE MOST RECENT DOSE PRIOR TO THE EVENT ONSET: 16/MAR/2017 OF 177.84 MG WITH A START TIME OF
     Route: 042
     Dates: start: 20170131
  3. ZOFRAN [Concomitant]
     Active Substance: ONDANSETRON HYDROCHLORIDE
     Indication: NAUSEA
     Route: 048
     Dates: start: 20170224
  4. PASPERTIN (AUSTRIA) [Concomitant]
     Indication: NAUSEA
     Route: 048
     Dates: start: 20170213
  5. NEULASTA [Concomitant]
     Active Substance: PEGFILGRASTIM
     Indication: NEUTROPENIA
     Route: 058
     Dates: start: 20170224, end: 20170224
  6. NEODOLPASSE [Concomitant]
     Route: 042
     Dates: start: 20170307, end: 20170307
  7. CARBOPLATIN. [Suspect]
     Active Substance: CARBOPLATIN
     Indication: SMALL CELL LUNG CANCER EXTENSIVE STAGE
     Dosage: DATE OF THE MOST RECENT DOSE PRIOR TO THE EVENT ONSET: 14/MAR/2017 OF 539.54 MG WITH A START TIME OF
     Route: 042
     Dates: start: 20170131
  8. PASPERTIN (AUSTRIA) [Concomitant]
     Route: 048
     Dates: start: 20170220
  9. NEULASTA [Concomitant]
     Active Substance: PEGFILGRASTIM
     Route: 058
     Dates: start: 20170407, end: 20170407
  10. ONDANSETRON [Concomitant]
     Active Substance: ONDANSETRON
     Route: 042
     Dates: start: 20170221, end: 20170223
  11. ATEZOLIZUMAB. [Suspect]
     Active Substance: ATEZOLIZUMAB
     Indication: SMALL CELL LUNG CANCER EXTENSIVE STAGE
     Dosage: DATE OF THE MOST RECENT DOSE PRIOR TO THE EVENT ONSET: 14/MAR/2017 WITH A START TIME OF 1300
     Route: 042
     Dates: start: 20170131
  12. LOVENOX [Concomitant]
     Active Substance: ENOXAPARIN SODIUM
     Route: 058
     Dates: start: 20170307, end: 20170308
  13. DEXABENE [Concomitant]
     Route: 042
     Dates: start: 20170404, end: 20170406
  14. ONDANSETRON [Concomitant]
     Active Substance: ONDANSETRON
     Route: 042
     Dates: start: 20170404, end: 20170406
  15. LOVENOX [Concomitant]
     Active Substance: ENOXAPARIN SODIUM
     Route: 058
     Dates: start: 20170215, end: 20170305
  16. NEULASTA [Concomitant]
     Active Substance: PEGFILGRASTIM
     Route: 058
     Dates: start: 20170317, end: 20170317
  17. XICLAV (AUSTRIA) [Concomitant]
     Indication: NEUTROPENIA
     Route: 048
     Dates: start: 20170217, end: 20170223
  18. DEXABENE [Concomitant]
     Route: 042
     Dates: start: 20170314, end: 20170316
  19. EFFORTIL [Concomitant]
     Active Substance: ETILEFRINE HYDROCHLORIDE
     Indication: HYPOTONIA
     Route: 048
     Dates: start: 20170205, end: 20170224
  20. EFFORTIL [Concomitant]
     Active Substance: ETILEFRINE HYDROCHLORIDE
     Route: 048
     Dates: start: 20170215, end: 20170320
  21. HALCION [Concomitant]
     Active Substance: TRIAZOLAM
     Indication: SLEEP DISORDER
     Route: 048
     Dates: start: 20170213
  22. LOVENOX [Concomitant]
     Active Substance: ENOXAPARIN SODIUM
     Indication: THROMBOPHLEBITIS
     Route: 058
     Dates: start: 20170306, end: 20170308
  23. NOVALGIN (AUSTRIA) [Concomitant]
     Indication: NEUTROPENIA
     Route: 048
     Dates: start: 20170217, end: 20170225
  24. ONDANSETRON [Concomitant]
     Active Substance: ONDANSETRON
     Route: 042
     Dates: start: 20170314, end: 20170316
  25. PASPERTIN (AUSTRIA) [Concomitant]
     Route: 042
     Dates: start: 20170309, end: 20170309
  26. LOVENOX [Concomitant]
     Active Substance: ENOXAPARIN SODIUM
     Indication: THROMBOSIS
     Route: 058
     Dates: start: 20170309, end: 20170424
  27. DEXABENE [Concomitant]
     Route: 042
     Dates: start: 20170221, end: 20170223

REACTIONS (3)
  - Autoimmune colitis [Recovered/Resolved]
  - Diverticular perforation [Recovered/Resolved]
  - Gastritis [Recovered/Resolved]

NARRATIVE: CASE EVENT DATE: 20170319
